FAERS Safety Report 23524465 (Version 1)
Quarter: 2024Q1

REPORT INFORMATION
  Report Type: 
  Country: None (occurrence: None)
  Receive Date: 20240214
  Receipt Date: 20240214
  Transmission Date: 20240410
  Serious: No
  Sender: FDA-Public Use
  Company Number: DE-ROCHE-2348416

PATIENT
  Weight: 87 kg

DRUGS (9)
  1. OCREVUS [Suspect]
     Active Substance: OCRELIZUMAB
     Dates: start: 20190618
  2. OCREVUS [Suspect]
     Active Substance: OCRELIZUMAB
     Dates: start: 20191213
  3. OCREVUS [Suspect]
     Active Substance: OCRELIZUMAB
     Dates: start: 20200602
  4. OCREVUS [Suspect]
     Active Substance: OCRELIZUMAB
     Dates: start: 20201117
  5. OCREVUS [Suspect]
     Active Substance: OCRELIZUMAB
     Dates: start: 20210608
  6. OCREVUS [Suspect]
     Active Substance: OCRELIZUMAB
  7. COMIRNATY (TOZINAMERAN) [Suspect]
     Active Substance: TOZINAMERAN
     Dates: start: 20211006
  8. CANNABIDIOL [Concomitant]
     Active Substance: CANNABIDIOL
  9. EUTHYROX [Concomitant]
     Active Substance: LEVOTHYROXINE SODIUM

REACTIONS (24)
  - Gastric polyps [None]
  - Type 2 diabetes mellitus [None]
  - Body temperature decreased [None]
  - Blood pressure decreased [None]
  - Head discomfort [None]
  - Abdominal discomfort [None]
  - Diarrhoea [None]
  - Headache [None]
  - Chills [None]
  - Abdominal pain [None]
  - Fatigue [None]
  - Off label use [None]
  - Hepatic function abnormal [None]
  - White blood cell count increased [None]
  - Glycosylated haemoglobin increased [None]
  - Arthralgia [None]
  - Weight decreased [None]
  - Pancreatic cyst [None]
  - COVID-19 [None]
  - Anosmia [None]
  - Ageusia [None]
  - COVID-19 [None]
  - Herpes zoster [None]
  - Pneumonia [None]

NARRATIVE: CASE EVENT DATE: 20190618
